FAERS Safety Report 5834613-7 (Version None)
Quarter: 2008Q3

REPORT INFORMATION
  Report Type: 
  Country: None (occurrence: None)
  Receive Date: 20080805
  Receipt Date: 20080723
  Transmission Date: 20090109
  Serious: Yes (Disabling, Other)
  Sender: FDA-Public Use
  Company Number: US-ELI_LILLY_AND_COMPANY-US200807004599

PATIENT
  Age: 68 Year
  Sex: Female

DRUGS (1)
  1. EVISTA [Suspect]
     Indication: PROPHYLAXIS
     Dosage: 60 MG, DAILY (1/D)
     Dates: start: 19990101, end: 20040101

REACTIONS (4)
  - BLINDNESS UNILATERAL [None]
  - EYE PAIN [None]
  - MACULAR DEGENERATION [None]
  - RETINAL VEIN OCCLUSION [None]
